FAERS Safety Report 5016032-9 (Version None)
Quarter: 2006Q2

REPORT INFORMATION
  Report Type: 
  Country: None (occurrence: None)
  Receive Date: 20060414
  Receipt Date: 20060314
  Transmission Date: 20061013
  Serious: No
  Sender: FDA-Public Use
  Company Number: 2006SP001223

PATIENT
  Age: 56 Year
  Sex: Female
  Weight: 45.8133 kg

DRUGS (10)
  1. LUNESTA [Suspect]
     Indication: INSOMNIA
     Dosage: 3 MG; HS; ORAL
     Route: 048
     Dates: start: 20060227, end: 20060313
  2. ROZEREM [Concomitant]
  3. KLONOPIN [Concomitant]
  4. TOPAMAX [Concomitant]
  5. IMIPRAMINE HCL [Concomitant]
  6. MELATONIN [Concomitant]
  7. COZAAR [Concomitant]
  8. NEXIUM [Concomitant]
  9. CELEXA [Concomitant]
  10. RITALIN [Concomitant]

REACTIONS (2)
  - DYSGEUSIA [None]
  - MIDDLE INSOMNIA [None]
